FAERS Safety Report 4877182-0 (Version None)
Quarter: 2005Q4

REPORT INFORMATION
  Report Type: 
  Country: None (occurrence: None)
  Receive Date: 20051206
  Receipt Date: 20050927
  Transmission Date: 20060501
  Serious: No
  Sender: FDA-Public Use
  Company Number: USA0509109540

PATIENT
  Age: 40 Year
  Sex: Male
  Weight: 104 kg

DRUGS (7)
  1. CYMBALTA [Suspect]
     Dosage: 30 MG IN THE MORNING
     Dates: start: 20050728, end: 20050815
  2. ANTIBIOTIC [Concomitant]
  3. GLUCOVANCE [Concomitant]
  4. ACTOS [Concomitant]
  5. CELEBREX [Concomitant]
  6. PREVACID [Concomitant]
  7. ULTRACET [Concomitant]

REACTIONS (2)
  - ABDOMINAL PAIN UPPER [None]
  - NAUSEA [None]
